FAERS Safety Report 12790071 (Version 2)
Quarter: 2016Q4

REPORT INFORMATION
  Report Type: Spontaneous
  Country: FR (occurrence: FR)
  Receive Date: 20160928
  Receipt Date: 20161003
  Transmission Date: 20170207
  Serious: Yes (Death)
  Sender: FDA-Public Use
  Company Number: FR-PFIZER INC-2016451104

PATIENT
  Age: 65 Year
  Sex: Female

DRUGS (5)
  1. ARGANOVA [Suspect]
     Active Substance: ARGATROBAN
     Indication: HEPARIN-INDUCED THROMBOCYTOPENIA
     Dosage: 1 UG/KG/MIN, UNK
     Route: 042
     Dates: start: 20160723, end: 20160724
  2. LOVENOX [Concomitant]
     Active Substance: ENOXAPARIN SODIUM
     Dosage: UNK
     Dates: start: 20160715, end: 20160718
  3. HEPARIN [Concomitant]
     Active Substance: HEPARIN SODIUM
     Dosage: UNK
  4. MIDAZOLAM [Concomitant]
     Active Substance: MIDAZOLAM\MIDAZOLAM HYDROCHLORIDE
     Indication: SEDATION
     Dosage: UNK
  5. SUFENTANIL [Concomitant]
     Active Substance: SUFENTANIL
     Indication: SEDATION
     Dosage: UNK

REACTIONS (1)
  - Hepatic failure [Fatal]

NARRATIVE: CASE EVENT DATE: 20160723
